FAERS Safety Report 8597598-9 (Version None)
Quarter: 2012Q3

REPORT INFORMATION
  Report Type: 
  Country: None (occurrence: None)
  Receive Date: 20120816
  Receipt Date: 20120808
  Transmission Date: 20120928
  Serious: Yes (Hospitalization)
  Sender: FDA-Public Use
  Company Number: US-BAYER-2012-081367

PATIENT
  Age: 26 Year
  Sex: Female
  Weight: 77.551 kg

DRUGS (7)
  1. IBUPROFEN [Concomitant]
     Dosage: 800 MG, UNK
     Route: 048
     Dates: start: 20120112, end: 20120122
  2. YAZ [Suspect]
     Indication: CONTRACEPTION
  3. I.V. SOLUTIONS [Concomitant]
  4. OXYCODONE AND ACETAMINOPHEN [Concomitant]
     Dosage: 5/325MG
     Route: 048
     Dates: start: 20120111, end: 20120121
  5. VALTREX [Concomitant]
     Dosage: UNK, DAILY
  6. COLACE [Concomitant]
     Dosage: 250 MG, BID
     Route: 048
     Dates: start: 20120111, end: 20120210
  7. ACYCLOVIR [Concomitant]
     Dosage: 400 MG, BID
     Route: 048
     Dates: start: 20120222

REACTIONS (1)
  - PULMONARY EMBOLISM [None]
